FAERS Safety Report 5250658-2 (Version None)
Quarter: 2007Q1

REPORT INFORMATION
  Report Type: 
  Country: None (occurrence: None)
  Receive Date: 20070228
  Receipt Date: 20060728
  Transmission Date: 20070707
  Serious: No
  Sender: FDA-Public Use
  Company Number: US-GLAXOSMITHKLINE-A0608830A

PATIENT
  Age: 47 Year
  Sex: Male

DRUGS (7)
  1. LAMICTAL [Suspect]
     Indication: BIPOLAR DISORDER
     Dosage: 25MG PER DAY
     Route: 048
     Dates: start: 20060605
  2. DICYCLOMINE [Concomitant]
  3. KLONOPIN [Concomitant]
  4. CYCLOBENZAPRINE HCL [Concomitant]
  5. LITHIUM CARBONATE [Concomitant]
  6. IMODIUM [Concomitant]
  7. PRILOSEC [Concomitant]

REACTIONS (4)
  - EAR PAIN [None]
  - HAEMATURIA [None]
  - PRURITUS [None]
  - RASH [None]
